FAERS Safety Report 7628580-3 (Version None)
Quarter: 2011Q3

REPORT INFORMATION
  Report Type: 
  Country: None (occurrence: None)
  Receive Date: 20110711
  Receipt Date: 20110624
  Transmission Date: 20111222
  Serious: Yes (Death, Hospitalization, Other)
  Sender: FDA-Public Use
  Company Number: 2011PROUSA00348

PATIENT
  Age: 62 Year
  Sex: Male
  Weight: 126.1 kg

DRUGS (15)
  1. ZOMETA [Concomitant]
  2. ENTERIC [Concomitant]
  3. MULTIVITAMINS (ASCORBIC ACID, ERGOCALCIFEROL, FOLIC ACID, NICOTINAMIDE [Concomitant]
  4. FERGON (FERROUS GLUCONATE) [Concomitant]
  5. ASPIRIN [Concomitant]
  6. PROVENGE [Suspect]
     Indication: PROSTATE CANCER METASTATIC
     Dosage: 250 ML, SINGLE, INTRAVENOUS
     Route: 042
     Dates: start: 20110407, end: 20110407
  7. LUPRON [Concomitant]
  8. INDOCIN /00003801/ (INDOMETHACIN) [Concomitant]
  9. CALTRATE /00751519/ (CALDIUM CARBONATE) CHEWABLE [Concomitant]
  10. ONDANSETRON [Concomitant]
  11. TERAZOSIN HCL [Concomitant]
  12. ATENOLOL [Concomitant]
  13. CASODEX [Concomitant]
  14. OXYCODONE HCL [Concomitant]
  15. CALCIUM (CALCIUM) [Concomitant]

REACTIONS (15)
  - BLOOD CREATININE INCREASED [None]
  - NO THERAPEUTIC RESPONSE [None]
  - BLOOD ALBUMIN DECREASED [None]
  - BLOOD ALKALINE PHOSPHATASE INCREASED [None]
  - PROSTATE CANCER METASTATIC [None]
  - HEADACHE [None]
  - WEIGHT DECREASED [None]
  - DECREASED APPETITE [None]
  - BLOOD UREA INCREASED [None]
  - METASTASES TO MENINGES [None]
  - SUBDURAL HAEMATOMA [None]
  - ANAEMIA [None]
  - NEOPLASM PROGRESSION [None]
  - PLATELET COUNT DECREASED [None]
  - NEUROLOGICAL SYMPTOM [None]
